FAERS Safety Report 18552017 (Version 1)
Quarter: 2020Q4

REPORT INFORMATION
  Report Type: Spontaneous
  Country: CN (occurrence: CN)
  Receive Date: 20201126
  Receipt Date: 20201126
  Transmission Date: 20210114
  Serious: Yes (Hospitalization)
  Sender: FDA-Public Use
  Company Number: CN-ROCHE-2717566

PATIENT
  Age: 67 Year
  Sex: Male
  Weight: 62 kg

DRUGS (16)
  1. SODIUM CHLORIDE IV [Concomitant]
     Active Substance: SODIUM CHLORIDE
     Dosage: SOLVENT FOR GEMCITABINE HYDROCHLORIDE FOR INJECTION
     Route: 041
     Dates: start: 20201013, end: 20201013
  2. RECOMBINANT HUMAN GRANULOCYTE COLONY STIMULATING FACTOR [Concomitant]
     Active Substance: GRANULOCYTE COLONY-STIMULATING FACTOR NOS
     Route: 058
     Dates: start: 20201027, end: 20201102
  3. LOBAPLATIN [Suspect]
     Active Substance: LOBAPLATIN
     Indication: METASTATIC CARCINOMA OF THE BLADDER
     Route: 041
     Dates: start: 20201013, end: 20201013
  4. SODIUM CHLORIDE IV [Concomitant]
     Active Substance: SODIUM CHLORIDE
     Indication: METASTATIC CARCINOMA OF THE BLADDER
     Dosage: SOLVENT FOR TRASTUZUMAB
     Route: 041
     Dates: start: 20201013, end: 20201013
  5. ESOMEPRAZOLE SODIUM. [Concomitant]
     Active Substance: ESOMEPRAZOLE SODIUM
     Dates: start: 20201027, end: 20201030
  6. COMPOUND FERROUS SULFATE AND FOLIC ACID [Concomitant]
     Route: 048
     Dates: start: 20201027
  7. SODIUM CHLORIDE IV [Concomitant]
     Active Substance: SODIUM CHLORIDE
     Dosage: SOLVENT FOR GEMCITABINE HYDROCHLORIDE FOR INJECTION
     Route: 041
     Dates: start: 20201021, end: 20201021
  8. RECOMBINANT HUMAN INTERLEUKIN-11 [Concomitant]
     Active Substance: OPRELVEKIN
     Route: 058
     Dates: start: 20201027
  9. THROMBOPOIETIN [Concomitant]
     Active Substance: THROMBOPOIETIN
     Dosage: 15000
  10. HERCEPTIN [Suspect]
     Active Substance: TRASTUZUMAB
     Indication: METASTATIC CARCINOMA OF THE BLADDER
     Route: 041
     Dates: start: 20201013, end: 20201013
  11. CARBAZOCHROME [Concomitant]
     Active Substance: CARBAZOCHROME
     Route: 041
     Dates: start: 20201027
  12. GEMCITABINE HYDROCHLORIDE. [Suspect]
     Active Substance: GEMCITABINE HYDROCHLORIDE
     Route: 041
     Dates: start: 20201021, end: 20201021
  13. GEMCITABINE HYDROCHLORIDE. [Suspect]
     Active Substance: GEMCITABINE HYDROCHLORIDE
     Indication: METASTATIC CARCINOMA OF THE BLADDER
     Route: 041
     Dates: start: 20201013, end: 20201013
  14. GLUCOSE [Concomitant]
     Active Substance: DEXTROSE
     Indication: METASTATIC CARCINOMA OF THE BLADDER
     Dosage: SOLVENT FOR LOBAPLATIN FOR INJECTION
     Route: 041
     Dates: start: 20201013, end: 20201013
  15. WATER FOR INJECTION [Concomitant]
     Active Substance: WATER
     Route: 058
     Dates: start: 20201027
  16. ETAMSYLATE AND SODIUM CHLORIDE [Concomitant]
     Dates: start: 20201027, end: 20201102

REACTIONS (6)
  - Haematuria [Recovering/Resolving]
  - Pyrexia [Recovered/Resolved]
  - Haematochezia [Recovering/Resolving]
  - Myelosuppression [Recovering/Resolving]
  - Off label use [Unknown]
  - Intentional product use issue [Unknown]

NARRATIVE: CASE EVENT DATE: 20201020
